FAERS Safety Report 6030154-5 (Version None)
Quarter: 2009Q1

REPORT INFORMATION
  Report Type: 
  Country: None (occurrence: None)
  Receive Date: 20090105
  Receipt Date: 20090105
  Transmission Date: 20090719
  Serious: Yes (Other)
  Sender: FDA-Public Use
  Company Number: None

PATIENT
  Age: 74 Year
  Sex: Male
  Weight: 104.3273 kg

DRUGS (1)
  1. CHANTIX [Suspect]
     Indication: SMOKING CESSATION THERAPY
     Dates: start: 20081123, end: 20081208

REACTIONS (4)
  - BLOOD GLUCOSE INCREASED [None]
  - EMOTIONAL DISTRESS [None]
  - PAPILLOEDEMA [None]
  - VISUAL ACUITY REDUCED [None]
